FAERS Safety Report 9665716 (Version 1)
Quarter: 2013Q4

REPORT INFORMATION
  Report Type: Report from Study
  Country: AU (occurrence: AU)
  Receive Date: 20131104
  Receipt Date: 20131104
  Transmission Date: 20140711
  Serious: Yes (Other)
  Sender: FDA-Public Use
  Company Number: PHHY2013AU123927

PATIENT
  Age: 69 Year
  Sex: Female

DRUGS (3)
  1. ACLASTA [Suspect]
     Dosage: UNK
     Route: 042
     Dates: start: 20101004
  2. ACLASTA [Suspect]
     Dosage: UNK
     Route: 042
     Dates: start: 20110805
  3. ACLASTA [Suspect]
     Dosage: UNK
     Route: 042
     Dates: start: 20120711

REACTIONS (4)
  - Epilepsy [Unknown]
  - Loss of consciousness [Unknown]
  - Headache [Unknown]
  - Inappropriate schedule of drug administration [Unknown]
